FAERS Safety Report 7880463-X (Version None)
Quarter: 2011Q4

REPORT INFORMATION
  Report Type: 
  Country: None (occurrence: None)
  Receive Date: 20111101
  Receipt Date: 20111024
  Transmission Date: 20120403
  Serious: Yes (Hospitalization)
  Sender: FDA-Public Use
  Company Number: PHHY2011BE86854

PATIENT
  Sex: Female

DRUGS (3)
  1. SEDINAL [Concomitant]
     Dates: start: 20110928
  2. PRIMOLUT-NOR [Concomitant]
     Indication: ENDOMETRIOSIS
     Dosage: 5 MG, DAILY
     Dates: start: 20110915
  3. GILENYA [Suspect]
     Indication: RELAPSING-REMITTING MULTIPLE SCLEROSIS
     Dosage: 0.5 MG, DAILY
     Route: 048
     Dates: start: 20110927

REACTIONS (8)
  - SKIN BURNING SENSATION [None]
  - HEART RATE IRREGULAR [None]
  - HOT FLUSH [None]
  - ASTHENIA [None]
  - HYPOTENSION [None]
  - CHEST DISCOMFORT [None]
  - VERTIGO [None]
  - PALPITATIONS [None]
